FAERS Safety Report 8379727-5 (Version None)
Quarter: 2012Q2

REPORT INFORMATION
  Report Type: 
  Country: None (occurrence: None)
  Receive Date: 20120523
  Receipt Date: 20110519
  Transmission Date: 20120825
  Serious: Yes (Hospitalization, Other)
  Sender: FDA-Public Use
  Company Number: MX-SANOFI-AVENTIS-2011SA031605

PATIENT
  Age: 63 Year
  Sex: Female

DRUGS (7)
  1. ARAVA [Suspect]
     Route: 048
     Dates: end: 20120201
  2. ALL OTHER THERAPEUTIC PRODUCTS [Concomitant]
     Route: 048
  3. AMLODIPINE BESYLATE [Concomitant]
     Route: 048
  4. ARAVA [Suspect]
     Dosage: EVERY 15 DAYS
     Route: 048
     Dates: start: 20120201
  5. PLAQUENIL [Suspect]
     Indication: RHEUMATOID ARTHRITIS
     Route: 048
  6. POSTURE-D ^WHITEHALL^ [Concomitant]
     Indication: OSTEOPOROSIS
     Route: 048
  7. ARAVA [Suspect]
     Indication: RHEUMATOID ARTHRITIS
     Dosage: START- 2007-2008
     Route: 048

REACTIONS (4)
  - ALOPECIA [None]
  - SPINAL CORD HERNIATION [None]
  - BACK PAIN [None]
  - INAPPROPRIATE SCHEDULE OF DRUG ADMINISTRATION [None]
